FAERS Safety Report 5380616-9 (Version None)
Quarter: 2007Q3

REPORT INFORMATION
  Report Type: 
  Country: None (occurrence: None)
  Receive Date: 20070706
  Receipt Date: 20070629
  Transmission Date: 20080115
  Serious: Yes (Other)
  Sender: FDA-Public Use
  Company Number: FR-GENENTECH-240882

PATIENT
  Sex: Male
  Weight: 73 kg

DRUGS (6)
  1. RITUXIMAB [Suspect]
     Indication: B-CELL LYMPHOMA
     Dosage: 375 MG/M2, Q3W
     Route: 042
     Dates: start: 20050915, end: 20051229
  2. RITUXIMAB [Suspect]
     Dosage: 375 MG/M2, Q2M
     Route: 042
     Dates: start: 20060201
  3. CORTANCYL [Concomitant]
     Indication: B-CELL LYMPHOMA
     Dosage: 40 MG/M2, Q3W
     Route: 048
     Dates: start: 20050915, end: 20051229
  4. ONCOVIN [Concomitant]
     Indication: B-CELL LYMPHOMA
     Dosage: 1.4 MG/M2, Q3W
     Route: 042
     Dates: start: 20050915, end: 20051229
  5. ADRIAMYCIN PFS [Concomitant]
     Indication: B-CELL LYMPHOMA
     Dosage: 50 MG/M2, Q3W
     Route: 042
     Dates: start: 20050915, end: 20051229
  6. CYCLOPHOSPHAMIDE [Concomitant]
     Indication: B-CELL LYMPHOMA
     Dosage: 750 MG/M2, Q3W
     Route: 042
     Dates: start: 20050915, end: 20051229

REACTIONS (1)
  - LUNG ADENOCARCINOMA [None]
